FAERS Safety Report 7659468-X (Version None)
Quarter: 2011Q3

REPORT INFORMATION
  Report Type: 
  Country: None (occurrence: None)
  Receive Date: 20110805
  Receipt Date: 20110727
  Transmission Date: 20111222
  Serious: Yes (Other)
  Sender: FDA-Public Use
  Company Number: CA-JNJFOC-20110800465

PATIENT
  Sex: Male
  Weight: 90 kg

DRUGS (9)
  1. BISMUTH [Concomitant]
  2. VITAMIN TAB [Concomitant]
  3. ACTONEL [Concomitant]
  4. REMICADE [Suspect]
     Indication: CROHN'S DISEASE
     Route: 042
     Dates: end: 20110602
  5. PREDNISONE [Concomitant]
  6. CALCIUM CARBONATE [Concomitant]
  7. FLOMAX [Concomitant]
  8. CELEBREX [Concomitant]
  9. IMURAN [Concomitant]

REACTIONS (1)
  - RENAL COLIC [None]
